FAERS Safety Report 7820315-4 (Version None)
Quarter: 2011Q4

REPORT INFORMATION
  Report Type: 
  Country: None (occurrence: None)
  Receive Date: 20111018
  Receipt Date: 20111003
  Transmission Date: 20120403
  Serious: Yes (Other)
  Sender: FDA-Public Use
  Company Number: US-ROCHE-1002622

PATIENT
  Sex: Female

DRUGS (8)
  1. EPIRUBICIN HYDROCHLORIDE [Suspect]
     Indication: BREAST CANCER
     Route: 042
     Dates: start: 20110419
  2. TRAMADOL HCL [Suspect]
     Indication: BREAST CANCER
     Dates: start: 20110419
  3. CYCLOPHOSPHAMIDE [Suspect]
     Indication: BREAST CANCER
     Route: 042
     Dates: start: 20110419
  4. HERCEPTIN [Suspect]
     Route: 042
  5. FLUOROURACIL [Suspect]
     Indication: BREAST CANCER
     Dosage: ROUTE IVP
     Dates: start: 20110419
  6. HERCEPTIN [Suspect]
     Route: 042
  7. HERCEPTIN [Suspect]
     Indication: BREAST CANCER
     Route: 042
     Dates: start: 20110419
  8. PACLITAXEL [Suspect]
     Indication: BREAST CANCER
     Route: 042
     Dates: start: 20110419

REACTIONS (2)
  - SYNCOPE [None]
  - HYPOXIA [None]
